FAERS Safety Report 23951367 (Version 1)
Quarter: 2024Q2

REPORT INFORMATION
  Report Type: Spontaneous
  Country: JP (occurrence: JP)
  Receive Date: 20240607
  Receipt Date: 20240607
  Transmission Date: 20240716
  Serious: Yes (Other)
  Sender: FDA-Public Use
  Company Number: None

PATIENT
  Age: 52 Year
  Sex: Female
  Weight: 55 kg

DRUGS (2)
  1. FERRIC DERISOMALTOSE [Suspect]
     Active Substance: FERRIC DERISOMALTOSE
     Indication: Anaemia
     Dates: start: 20240319, end: 20240319
  2. FERRIC DERISOMALTOSE [Suspect]
     Active Substance: FERRIC DERISOMALTOSE
     Indication: Anaemia
     Dates: start: 20240319, end: 20240319

REACTIONS (3)
  - Hypophosphataemia [Recovering/Resolving]
  - Fibroblast growth factor 23 increased [Recovering/Resolving]
  - Yellow skin [Unknown]

NARRATIVE: CASE EVENT DATE: 20240101
